FAERS Safety Report 15186646 (Version 2)
Quarter: 2019Q1

REPORT INFORMATION
  Report Type: Report from Study
  Country: US (occurrence: US)
  Receive Date: 20180723
  Receipt Date: 20190130
  Transmission Date: 20190417
  Serious: No
  Sender: FDA-Public Use
  Company Number: US-EXELIXIS-CABO-18014003

PATIENT
  Age: 71 Year
  Sex: Female

DRUGS (20)
  1. METOPROLOL SUCCINATE. [Concomitant]
     Active Substance: METOPROLOL SUCCINATE
  2. ELIQUIS [Concomitant]
     Active Substance: APIXABAN
  3. ONDANSETRON [Concomitant]
     Active Substance: ONDANSETRON
  4. DIPHENOXYLATE/ATROPINE [Concomitant]
     Active Substance: ATROPINE\DIPHENOXYLATE
     Dosage: UNK
  5. HYDROXYCHLOROQUINE [Concomitant]
     Active Substance: HYDROXYCHLOROQUINE
  6. ASA [Concomitant]
     Active Substance: ASPIRIN
  7. CABOMETYX [Suspect]
     Active Substance: CABOZANTINIB S-MALATE
     Indication: RENAL CANCER
     Dosage: UNK
     Dates: start: 20180418
  8. LEVOTHYROXIN [Concomitant]
     Active Substance: LEVOTHYROXINE
  9. ATORVASTATIN [Concomitant]
     Active Substance: ATORVASTATIN
  10. AMOXICILLIN. [Concomitant]
     Active Substance: AMOXICILLIN
  11. CABOMETYX [Suspect]
     Active Substance: CABOZANTINIB S-MALATE
     Dosage: 40 MG, QD
     Route: 048
     Dates: start: 20180515
  12. PREDNISONE. [Concomitant]
     Active Substance: PREDNISONE
  13. ENOXAPARIN [Concomitant]
     Active Substance: ENOXAPARIN
  14. FLURBIPROFEN. [Concomitant]
     Active Substance: FLURBIPROFEN
  15. AMLODIPINE/BENAZEPRIL [Concomitant]
     Active Substance: AMLODIPINE BESYLATE\BENAZEPRIL HYDROCHLORIDE
  16. SALINE NASAL MIST [Concomitant]
  17. CHLORHEXIDINE GLUCONATE. [Concomitant]
     Active Substance: CHLORHEXIDINE GLUCONATE
  18. AMLODIPINE [Concomitant]
     Active Substance: AMLODIPINE BESYLATE
  19. CLONIDINE. [Concomitant]
     Active Substance: CLONIDINE
  20. ATENOLOL. [Concomitant]
     Active Substance: ATENOLOL

REACTIONS (7)
  - Alopecia [Not Recovered/Not Resolved]
  - Epistaxis [Unknown]
  - Nausea [Unknown]
  - Hypertension [Not Recovered/Not Resolved]
  - Diarrhoea [Not Recovered/Not Resolved]
  - Gingival bleeding [Unknown]
  - Vomiting [Unknown]

NARRATIVE: CASE EVENT DATE: 20180422
